FAERS Safety Report 16488692 (Version 1)
Quarter: 2019Q2

REPORT INFORMATION
  Report Type: Spontaneous
  Country: US (occurrence: US)
  Receive Date: 20190627
  Receipt Date: 20190627
  Transmission Date: 20190711
  Serious: No
  Sender: FDA-Public Use
  Company Number: US-009507513-1812USA005734

PATIENT
  Age: 37 Year
  Sex: Female

DRUGS (7)
  1. GONADOTROPIN, CHORIONIC [Concomitant]
     Active Substance: CHORIOGONADOTROPIN ALFA
  2. GANIRELIX ACETATE INJECTION [Suspect]
     Active Substance: GANIRELIX ACETATE
     Indication: INFERTILITY FEMALE
     Dosage: 250 MILLIGRAM, QD, UNDER SKIN
     Dates: start: 20181130
  3. FOLLISTIM [Concomitant]
     Active Substance: FOLLITROPIN
  4. LEUPROLIDE [Concomitant]
     Active Substance: LEUPROLIDE
  5. ESTARYLLA [Concomitant]
     Active Substance: ETHINYL ESTRADIOL\NORGESTIMATE
  6. ENDOMETRIN [Concomitant]
     Active Substance: PROGESTERONE
  7. ESTRADIOL. [Concomitant]
     Active Substance: ESTRADIOL

REACTIONS (1)
  - Headache [Unknown]

NARRATIVE: CASE EVENT DATE: 2018
